FAERS Safety Report 4440309-9 (Version None)
Quarter: 2004Q3

REPORT INFORMATION
  Report Type: 
  Country: None (occurrence: None)
  Receive Date: 20040831
  Receipt Date: 20040831
  Transmission Date: 20050211
  Serious: Yes (Life-Threatening)
  Sender: FDA-Public Use
  Company Number: None

PATIENT
  Age: 86 Year
  Sex: Female
  Weight: 62 kg

DRUGS (13)
  1. PRINIVIL [Suspect]
     Indication: HYPERTENSION
     Dosage: 20 MG QD ORAL
     Route: 048
     Dates: start: 20010527, end: 20040527
  2. AMLODIPINE [Concomitant]
  3. FUROSEMIDE [Concomitant]
  4. ISORDIL [Concomitant]
  5. ASPIRIN [Concomitant]
  6. SYNTHROID [Concomitant]
  7. CITALOPRAM [Concomitant]
  8. POTASSIUM CHLORIDE [Concomitant]
  9. SIMVASTATIN [Concomitant]
  10. CITRUCEL [Concomitant]
  11. PERI-COLACE [Concomitant]
  12. FOSAMAX [Concomitant]
  13. PREMARIN [Concomitant]

REACTIONS (1)
  - ANGIONEUROTIC OEDEMA [None]
